FAERS Safety Report 8168194-2 (Version None)
Quarter: 2012Q1

REPORT INFORMATION
  Report Type: 
  Country: None (occurrence: None)
  Receive Date: 20120222
  Receipt Date: 20111128
  Transmission Date: 20120608
  Serious: Yes (Other)
  Sender: FDA-Public Use
  Company Number: AUR-APU-2011-05489

PATIENT
  Sex: Male

DRUGS (1)
  1. LOSARTAN POTASSIUM [Suspect]
     Indication: HYPERTENSION
     Dosage: 1 DOSAGE FORMS (1 DOSAGE FORMS, 1 IN 24 HR), ORAL
     Route: 048
     Dates: end: 20111009

REACTIONS (4)
  - EPISTAXIS [None]
  - WRONG DRUG ADMINISTERED [None]
  - HEART RATE DECREASED [None]
  - HYPERTENSION [None]
